FAERS Safety Report 7335897-9 (Version None)
Quarter: 2011Q1

REPORT INFORMATION
  Report Type: 
  Country: None (occurrence: None)
  Receive Date: 20110307
  Receipt Date: 20110225
  Transmission Date: 20110831
  Serious: Yes (Death, Hospitalization)
  Sender: FDA-Public Use
  Company Number: JP-CELGENEUS-087-21880-10121758

PATIENT
  Sex: Female

DRUGS (29)
  1. DECADRON [Suspect]
     Indication: MULTIPLE MYELOMA
     Dosage: 8 MILLIGRAM
     Route: 041
     Dates: start: 20100916, end: 20101001
  2. MYSLEE [Concomitant]
     Indication: MULTIPLE MYELOMA
     Dosage: 5 MILLIGRAM
     Route: 048
     Dates: end: 20110113
  3. REVLIMID [Suspect]
     Dosage: 10 MILLIGRAM
     Route: 048
     Dates: start: 20101220, end: 20110104
  4. MINOCYCLINE HCL [Suspect]
     Indication: MULTIPLE MYELOMA
     Dosage: 10 MILLIGRAM
     Route: 048
     Dates: start: 20100809
  5. CONFATANIN [Concomitant]
     Indication: MULTIPLE MYELOMA
     Dosage: 60 MILLIGRAM
     Route: 048
     Dates: end: 20110113
  6. REVLIMID [Suspect]
     Dosage: 5 MILLIGRAM
     Route: 048
     Dates: start: 20101127, end: 20101212
  7. ERYTHROMYCIN [Concomitant]
     Indication: MULTIPLE MYELOMA
     Dosage: 600 MILLIGRAM
     Route: 048
     Dates: end: 20110113
  8. FUROSEMIDE [Concomitant]
     Indication: MULTIPLE MYELOMA
     Dosage: 20 MILLIGRAM
     Route: 048
     Dates: end: 20110113
  9. DUROTEP [Concomitant]
     Indication: MULTIPLE MYELOMA
     Dosage: 4.2 MG/3 DAYS
     Route: 061
     Dates: end: 20110113
  10. ITRIZOLE [Concomitant]
     Indication: PROPHYLAXIS
     Dosage: 20 MILLIGRAM
     Route: 048
     Dates: start: 20101205, end: 20101211
  11. REVLIMID [Suspect]
     Dosage: 10 MILLIGRAM
     Route: 048
     Dates: start: 20101014, end: 20101020
  12. MINOCYCLINE HCL [Suspect]
  13. SOLANAX [Concomitant]
     Indication: MULTIPLE MYELOMA
     Dosage: .4 MILLIGRAM
     Route: 048
     Dates: end: 20110113
  14. MECOBALAMIN [Concomitant]
     Dosage: 1.5 GRAM
     Route: 048
     Dates: end: 20110113
  15. DECADRON [Suspect]
     Indication: HERPES ZOSTER
     Dosage: 8 MILLIGRAM
     Route: 041
     Dates: start: 20101014, end: 20101015
  16. CABAGIN-U [Concomitant]
     Indication: MULTIPLE MYELOMA
     Dosage: 75 MILLIGRAM
     Route: 048
     Dates: end: 20110113
  17. MIYA BM [Concomitant]
     Indication: MULTIPLE MYELOMA
     Dosage: 3 GRAM
     Route: 048
     Dates: end: 20110113
  18. ASPARA POTASSIUM [Concomitant]
     Indication: PROPHYLAXIS
     Dosage: 300 MILLIGRAM
     Route: 048
     Dates: end: 20110113
  19. PROCTOSEDYL [Concomitant]
     Dosage: 2 GRAM
     Route: 061
     Dates: start: 20101203, end: 20101212
  20. ENEMA [Concomitant]
     Route: 065
  21. REVLIMID [Suspect]
     Indication: MULTIPLE MYELOMA
     Dosage: 10 MILLIGRAM
     Route: 048
     Dates: start: 20100916, end: 20101005
  22. REVLIMID [Suspect]
     Dosage: 10 MILLIGRAM
     Route: 048
     Dates: start: 20101122, end: 20101126
  23. DECADRON [Suspect]
     Dosage: 1 MILLIGRAM
     Route: 048
     Dates: start: 20101122, end: 20101123
  24. GABAPEN [Concomitant]
     Indication: MULTIPLE MYELOMA
     Dosage: 600 MILLIGRAM
     Route: 048
     Dates: end: 20110113
  25. HYPEN [Concomitant]
     Indication: MULTIPLE MYELOMA
     Dosage: 400 MILLIGRAM
     Route: 048
     Dates: end: 20110113
  26. LUPRAC [Concomitant]
     Indication: MULTIPLE MYELOMA
     Dosage: 4 MILLIGRAM
     Route: 048
     Dates: end: 20110113
  27. PREDNISOLONE [Concomitant]
     Indication: MULTIPLE MYELOMA
     Dosage: 5 MILLIGRAM
     Route: 048
     Dates: end: 20110113
  28. ETIZOLAM [Concomitant]
     Indication: MULTIPLE MYELOMA
     Dosage: .5 MILLIGRAM
     Route: 048
     Dates: end: 20110113
  29. LANSOPRAZOLE [Concomitant]
     Indication: PROPHYLAXIS
     Dosage: 15 MILLIGRAM
     Route: 048
     Dates: end: 20110113

REACTIONS (10)
  - MULTIPLE MYELOMA [None]
  - HERPES ZOSTER [None]
  - HYPOAESTHESIA [None]
  - DIVERTICULITIS [None]
  - NAUSEA [None]
  - LEUKOPENIA [None]
  - PNEUMONIA [None]
  - HEADACHE [None]
  - C-REACTIVE PROTEIN INCREASED [None]
  - THROMBOCYTOPENIA [None]
